FAERS Safety Report 6452715-1 (Version None)
Quarter: 2009Q4

REPORT INFORMATION
  Report Type: 
  Country: None (occurrence: None)
  Receive Date: 20091124
  Receipt Date: 20091116
  Transmission Date: 20100525
  Serious: Yes (Other)
  Sender: FDA-Public Use
  Company Number: JP-JNJFOC-20091102276

PATIENT
  Sex: Female

DRUGS (7)
  1. DOXIL [Suspect]
     Route: 042
  2. DOXIL [Suspect]
     Route: 042
  3. DOXIL [Suspect]
     Indication: OVARIAN CANCER RECURRENT
     Route: 042
  4. CELESTAMINE TAB [Concomitant]
     Route: 048
  5. MUCOSTA [Concomitant]
     Route: 048
  6. ALLELOCK [Concomitant]
     Route: 048
  7. WHITE OINTMENT [Concomitant]
     Route: 061

REACTIONS (3)
  - ALANINE AMINOTRANSFERASE INCREASED [None]
  - ASPARTATE AMINOTRANSFERASE INCREASED [None]
  - DISSEMINATED INTRAVASCULAR COAGULATION [None]
